FAERS Safety Report 22083685 (Version 2)
Quarter: 2023Q2

REPORT INFORMATION
  Report Type: Spontaneous
  Country: US (occurrence: US)
  Receive Date: 20230310
  Receipt Date: 20230601
  Transmission Date: 20230721
  Serious: Yes (Other)
  Sender: FDA-Public Use
  Company Number: US-PFIZER INC-PV202300044759

PATIENT
  Age: 68 Year
  Sex: Female

DRUGS (1)
  1. BOSULIF [Suspect]
     Active Substance: BOSUTINIB MONOHYDRATE
     Dosage: 100 MG, 2X/DAY (TAKE TWO 100 MG PILLS PO DAILY)
     Route: 048

REACTIONS (4)
  - Second primary malignancy [Unknown]
  - Neoplasm malignant [Unknown]
  - Asthma [Unknown]
  - Off label use [Unknown]
